FAERS Safety Report 20060000 (Version 2)
Quarter: 2021Q4

REPORT INFORMATION
  Report Type: Spontaneous
  Country: US (occurrence: US)
  Receive Date: 20211111
  Receipt Date: 20211122
  Transmission Date: 20220303
  Serious: No
  Sender: FDA-Public Use
  Company Number: US-AMGEN-USASP2021172680

PATIENT
  Sex: Female

DRUGS (1)
  1. REPATHA [Suspect]
     Active Substance: EVOLOCUMAB
     Indication: Product used for unknown indication
     Dosage: 140 MILLIGRAM, Q2WK
     Route: 065
     Dates: start: 2021

REACTIONS (9)
  - Pruritus [Unknown]
  - Pyrexia [Recovering/Resolving]
  - Oropharyngeal pain [Recovered/Resolved]
  - Feeling abnormal [Unknown]
  - Blister [Unknown]
  - Lymphadenopathy [Unknown]
  - Cough [Unknown]
  - Rash [Not Recovered/Not Resolved]
  - Urticaria [Recovering/Resolving]

NARRATIVE: CASE EVENT DATE: 20210101
